FAERS Safety Report 5922594-7 (Version None)
Quarter: 2008Q4

REPORT INFORMATION
  Report Type: 
  Country: None (occurrence: None)
  Receive Date: 20081017
  Receipt Date: 20081010
  Transmission Date: 20090506
  Serious: Yes (Hospitalization, Other)
  Sender: FDA-Public Use
  Company Number: PHHY2008BR19904

PATIENT
  Sex: Male

DRUGS (5)
  1. TEGRETOL [Suspect]
     Indication: EPILEPSY
     Dosage: 200 MG, TID
     Route: 048
  2. CHLORPROMAZINE HCL [Concomitant]
     Indication: NERVOUSNESS
     Dosage: 25 MG
     Route: 048
  3. ACETAMINOPHEN W/ CODEINE [Concomitant]
     Dosage: 7.5 MG, Q8H
     Route: 048
  4. VOLTAREN [Concomitant]
  5. DIPROSPAN [Concomitant]

REACTIONS (15)
  - BLISTER [None]
  - BONE PAIN [None]
  - CONVULSION [None]
  - DRUG ADMINISTRATION ERROR [None]
  - EYE PRURITUS [None]
  - EYE SWELLING [None]
  - FEELING ABNORMAL [None]
  - GINGIVAL DISCOLOURATION [None]
  - HEADACHE [None]
  - LACRIMATION INCREASED [None]
  - NERVOUSNESS [None]
  - SPINE MALFORMATION [None]
  - SWELLING FACE [None]
  - TREATMENT NONCOMPLIANCE [None]
  - VISION BLURRED [None]
